FAERS Safety Report 5499803-4 (Version None)
Quarter: 2007Q4

REPORT INFORMATION
  Report Type: 
  Country: None (occurrence: None)
  Receive Date: 20071026
  Receipt Date: 20071017
  Transmission Date: 20080405
  Serious: Yes (Hospitalization, Other)
  Sender: FDA-Public Use
  Company Number: US-PFIZER INC-2007069466

PATIENT
  Sex: Male
  Weight: 68 kg

DRUGS (1)
  1. BEXTRA [Suspect]
     Indication: BACK PAIN
     Route: 048
     Dates: start: 20031203, end: 20040501

REACTIONS (1)
  - TRANSIENT ISCHAEMIC ATTACK [None]
